FAERS Safety Report 5723988-5 (Version None)
Quarter: 2008Q2

REPORT INFORMATION
  Report Type: 
  Country: None (occurrence: None)
  Receive Date: 20080430
  Receipt Date: 20080421
  Transmission Date: 20081010
  Serious: Yes (Other)
  Sender: FDA-Public Use
  Company Number: PHEH2005US13200

PATIENT
  Age: 8 Year
  Sex: Female

DRUGS (5)
  1. FOCALIN XR [Suspect]
     Indication: ATTENTION DEFICIT/HYPERACTIVITY DISORDER
     Dosage: 10 MG, QD
     Route: 048
     Dates: start: 20050901
  2. FOCALIN XR [Suspect]
     Dosage: 15 MG, UNK
     Route: 048
  3. FOCALIN XR [Suspect]
     Dosage: 10 MG, UNK
     Route: 048
     Dates: end: 20080405
  4. FOCALIN [Suspect]
     Indication: ATTENTION DEFICIT/HYPERACTIVITY DISORDER
     Dosage: 15 MG, UNK
     Route: 048
  5. FOCALIN [Suspect]
     Dosage: 10 MG, UNK
     Route: 048
     Dates: end: 20080405

REACTIONS (9)
  - ABNORMAL BEHAVIOUR [None]
  - AGGRESSION [None]
  - ANXIETY [None]
  - BINOCULAR EYE MOVEMENT DISORDER [None]
  - DECREASED APPETITE [None]
  - INSOMNIA [None]
  - NERVOUSNESS [None]
  - VISUAL DISTURBANCE [None]
  - WEIGHT DECREASED [None]
